FAERS Safety Report 9475053 (Version 1)
Quarter: 2013Q3

REPORT INFORMATION
  Report Type: Report from Study
  Country: US (occurrence: US)
  Receive Date: 20130824
  Receipt Date: 20130824
  Transmission Date: 20140515
  Serious: Yes (Other)
  Sender: FDA-Public Use
  Company Number: US-ROCHE-1264263

PATIENT
  Age: 79 Year
  Sex: Female

DRUGS (2)
  1. AVASTIN [Suspect]
     Indication: MACULAR DEGENERATION
     Dosage: 1.25MG IN 0.05ML
     Route: 050
  2. VISINE [Concomitant]
     Dosage: AT EVENING
     Route: 065

REACTIONS (5)
  - Eye disorder [Unknown]
  - Blindness unilateral [Unknown]
  - Vitreous floaters [Unknown]
  - Visual impairment [Unknown]
  - Vitreous detachment [Unknown]
